FAERS Safety Report 5743300-5 (Version None)
Quarter: 2008Q2

REPORT INFORMATION
  Report Type: 
  Country: None (occurrence: None)
  Receive Date: 20080519
  Receipt Date: 20080507
  Transmission Date: 20081010
  Serious: Yes (Death, Other)
  Sender: FDA-Public Use
  Company Number: JP-PFIZER INC-2008027727

PATIENT
  Sex: Male

DRUGS (10)
  1. UNASYN [Suspect]
     Indication: URINARY TRACT INFECTION
     Route: 042
     Dates: start: 20071228, end: 20071230
  2. AMICALIQ [Suspect]
     Indication: FLUID REPLACEMENT
     Route: 042
     Dates: start: 20071228, end: 20071231
  3. AMLODIN [Concomitant]
     Route: 048
     Dates: start: 20000524, end: 20071228
  4. TAKEPRON [Concomitant]
     Route: 048
     Dates: start: 20000524, end: 20071228
  5. KELNAC [Concomitant]
     Route: 048
     Dates: start: 20000524, end: 20071228
  6. PAXIL [Concomitant]
     Route: 048
     Dates: start: 20060726, end: 20071228
  7. SOLITA T [Concomitant]
     Route: 042
  8. LACTEC [Concomitant]
     Route: 042
  9. ZANTAC [Concomitant]
     Route: 042
     Dates: start: 20071229, end: 20080107
  10. DIGOSIN [Concomitant]
     Route: 042

REACTIONS (2)
  - HEPATIC FUNCTION ABNORMAL [None]
  - SEPSIS [None]
